FAERS Safety Report 4786273-4 (Version None)
Quarter: 2005Q3

REPORT INFORMATION
  Report Type: 
  Country: None (occurrence: None)
  Receive Date: 20050929
  Receipt Date: 20041208
  Transmission Date: 20060218
  Serious: Yes (Hospitalization)
  Sender: FDA-Public Use
  Company Number: 388712

PATIENT
  Age: 67 Year
  Sex: Male

DRUGS (3)
  1. DEMADEX [Suspect]
     Dates: start: 20040415
  2. BUMEX [Suspect]
     Indication: FLUID RETENTION
     Dates: start: 20040915
  3. FUROSEMIDE [Concomitant]

REACTIONS (4)
  - DEHYDRATION [None]
  - FLUID RETENTION [None]
  - THIRST [None]
  - WEIGHT INCREASED [None]
